FAERS Safety Report 22600098 (Version 2)
Quarter: 2023Q2

REPORT INFORMATION
  Report Type: Spontaneous
  Country: US (occurrence: US)
  Receive Date: 20230614
  Receipt Date: 20230616
  Transmission Date: 20230722
  Serious: No
  Sender: FDA-Public Use
  Company Number: US-PFIZER INC-202300217892

PATIENT
  Age: 15 Year
  Sex: Male
  Weight: 48.526 kg

DRUGS (4)
  1. GENOTROPIN [Suspect]
     Active Substance: SOMATROPIN
     Dosage: 1.8 MG
     Dates: start: 20230601
  2. DEXEDRINE [Concomitant]
     Active Substance: DEXTROAMPHETAMINE SULFATE
     Indication: Attention deficit hyperactivity disorder
     Dosage: 15 MG
  3. CYPROHEPTADINE [Concomitant]
     Active Substance: CYPROHEPTADINE
     Indication: Attention deficit hyperactivity disorder
     Dosage: 15 MG, DAILY (TAKE 3 MILLIGRAMS IN THE MORNING IN A DAY AND 12 MILLIGRAMS AT BEDTIME)
  4. FLUOXETINE [Concomitant]
     Active Substance: FLUOXETINE HYDROCHLORIDE
     Indication: Attention deficit hyperactivity disorder
     Dosage: UNK

REACTIONS (8)
  - Poor quality device used [Unknown]
  - Accidental overdose [Unknown]
  - Drug dose omission by device [Unknown]
  - Device leakage [Unknown]
  - Device mechanical issue [Unknown]
  - Headache [Unknown]
  - Feeling abnormal [Unknown]
  - Growing pains [Not Recovered/Not Resolved]
